FAERS Safety Report 7322781-X (Version None)
Quarter: 2011Q1

REPORT INFORMATION
  Report Type: 
  Country: None (occurrence: None)
  Receive Date: 20110216
  Receipt Date: 20110201
  Transmission Date: 20110831
  Serious: Yes (Hospitalization, Other)
  Sender: FDA-Public Use
  Company Number: 08-AUR-04950

PATIENT
  Age: 50 Year
  Sex: Male

DRUGS (8)
  1. PERINDROPRIL [Concomitant]
  2. AMLODIPINE [Concomitant]
  3. METFORMIN [Suspect]
     Indication: DIABETES MELLITUS
     Dosage: 500MG-1000MG-BID-
  4. ARIPIPRAZOLE [Suspect]
     Indication: SCHIZOPHRENIA, PARANOID TYPE
     Dosage: 15-20 MG/DAY
  5. GLICLAZIDE [Suspect]
     Indication: TYPE 2 DIABETES MELLITUS
     Dosage: 30 MG/DAY
  6. SIMVASTATIN [Concomitant]
  7. RISPERDONE [Suspect]
     Indication: SCHIZOPHRENIA, PARANOID TYPE
     Dosage: 6 MG/DAY - ORAL
     Route: 048
  8. OLANZAPINE [Suspect]
     Indication: SCHIZOPHRENIA, PARANOID TYPE
     Dosage: 20-25 MG/DAY

REACTIONS (7)
  - TREATMENT NONCOMPLIANCE [None]
  - MENTAL DISORDER [None]
  - TYPE 2 DIABETES MELLITUS [None]
  - WEIGHT DECREASED [None]
  - GLYCOSYLATED HAEMOGLOBIN INCREASED [None]
  - HYPOGLYCAEMIA [None]
  - URINARY INCONTINENCE [None]
